FAERS Safety Report 6108920-7 (Version None)
Quarter: 2009Q1

REPORT INFORMATION
  Report Type: 
  Country: None (occurrence: None)
  Receive Date: 20090310
  Receipt Date: 20090303
  Transmission Date: 20090719
  Serious: Yes (Hospitalization, Disabling)
  Sender: FDA-Public Use
  Company Number: CA-BAYER-200910280NA

PATIENT
  Age: 26 Year
  Sex: Female
  Weight: 74 kg

DRUGS (1)
  1. YASMIN [Suspect]
     Indication: CONTRACEPTION
     Route: 048

REACTIONS (6)
  - ASTHENIA [None]
  - FATIGUE [None]
  - HEPATIC PAIN [None]
  - JAUNDICE [None]
  - NAUSEA [None]
  - RENAL PAIN [None]
